FAERS Safety Report 11446285 (Version 1)
Quarter: 2015Q3

REPORT INFORMATION
  Report Type: Spontaneous
  Country: US (occurrence: None)
  Receive Date: 20150901
  Receipt Date: 20150901
  Transmission Date: 20151125
  Serious: Yes (Hospitalization)
  Sender: FDA-Public Use
  Company Number: None

PATIENT
  Age: 76 Year
  Sex: Female
  Weight: 147 kg

DRUGS (13)
  1. ACETAMINOPHEN. [Concomitant]
     Active Substance: ACETAMINOPHEN
  2. ALPRAZOLAM. [Concomitant]
     Active Substance: ALPRAZOLAM
  3. GLIPIZIDE. [Concomitant]
     Active Substance: GLIPIZIDE
  4. METOPROLOL [Concomitant]
     Active Substance: METOPROLOL
  5. FAMOTIDINE 20MG [Suspect]
     Active Substance: FAMOTIDINE
     Indication: PROPHYLAXIS
     Route: 048
     Dates: start: 20150824, end: 20150826
  6. FUROSEMIDE. [Concomitant]
     Active Substance: FUROSEMIDE
  7. AMLODIPINE [Concomitant]
     Active Substance: AMLODIPINE BESYLATE
  8. FAMOTIDINE 20MG [Suspect]
     Active Substance: FAMOTIDINE
     Indication: GASTROINTESTINAL DISORDER
     Route: 048
     Dates: start: 20150824, end: 20150826
  9. INSULIN [Concomitant]
     Active Substance: INSULIN NOS
  10. CALCIUM [Concomitant]
     Active Substance: CALCIUM
  11. NYSTATIN. [Concomitant]
     Active Substance: NYSTATIN
  12. KETOROLAC [Concomitant]
     Active Substance: KETOROLAC\KETOROLAC TROMETHAMINE
  13. ENOXAPARIN [Concomitant]
     Active Substance: ENOXAPARIN

REACTIONS (1)
  - Neutropenia [None]

NARRATIVE: CASE EVENT DATE: 20150826
